FAERS Safety Report 12974313 (Version 1)
Quarter: 2016Q4

REPORT INFORMATION
  Report Type: Spontaneous
  Country: US (occurrence: US)
  Receive Date: 20161125
  Receipt Date: 20161125
  Transmission Date: 20170207
  Serious: Yes (Hospitalization, Other)
  Sender: FDA-Public Use
  Company Number: US-ROCHE-1858208

PATIENT
  Sex: Male
  Weight: 67.19 kg

DRUGS (1)
  1. ERIVEDGE [Suspect]
     Active Substance: VISMODEGIB
     Indication: ADENOSQUAMOUS CELL CARCINOMA
     Route: 065
     Dates: start: 20161117

REACTIONS (8)
  - Lung infiltration [Unknown]
  - Off label use [Unknown]
  - Hypoxia [Unknown]
  - Respiratory failure [Unknown]
  - Cough [Not Recovered/Not Resolved]
  - Respiratory disorder [Not Recovered/Not Resolved]
  - Oxygen saturation decreased [Not Recovered/Not Resolved]
  - Dyspnoea [Not Recovered/Not Resolved]
